FAERS Safety Report 15000386 (Version 3)
Quarter: 2018Q2

REPORT INFORMATION
  Report Type: Spontaneous
  Country: ES (occurrence: ES)
  Receive Date: 20180612
  Receipt Date: 20180620
  Transmission Date: 20180711
  Serious: Yes (Other)
  Sender: FDA-Public Use
  Company Number: ES-TEVA-2018-ES-905784

PATIENT
  Age: 77 Year
  Sex: Female

DRUGS (7)
  1. ALOPURINOL (318A) [Concomitant]
     Active Substance: ALLOPURINOL
     Dosage: 100 MILLIGRAM DAILY;
     Route: 048
  2. SUTRIL 5 MG COMPRIMIDOS, 30 COMPRIMIDOS [Concomitant]
     Indication: HYPERTENSION
     Dosage: 5 MILLIGRAM DAILY;
     Route: 048
  3. LEVOFLOXACINO (2791A) [Suspect]
     Active Substance: LEVOFLOXACIN
     Indication: PNEUMONIA
     Dosage: 500 MILLIGRAM DAILY;
     Route: 048
     Dates: start: 20180228, end: 20180302
  4. LOSARTAN (7157A) [Concomitant]
     Active Substance: LOSARTAN
     Indication: HYPERTENSION
     Dosage: 100 MILLIGRAM DAILY;
     Route: 048
  5. HIDROFEROL 0,266 MG SOLUCION ORAL , 10 AMPOLLAS BEBIBLES DE 1,5 ML [Concomitant]
     Active Substance: CALCIFEDIOL
     Route: 048
  6. OMEPRAZOL (2141A) [Concomitant]
     Active Substance: OMEPRAZOLE
     Dosage: 20 MILLIGRAM DAILY;
     Route: 048
  7. SIMVASTATINA (1023A) [Concomitant]
     Active Substance: SIMVASTATIN
     Dosage: 10 MILLIGRAM DAILY;
     Route: 048

REACTIONS (1)
  - Enterocolitis haemorrhagic [Recovered/Resolved]

NARRATIVE: CASE EVENT DATE: 20180302
